FAERS Safety Report 7252149-6 (Version None)
Quarter: 2011Q1

REPORT INFORMATION
  Report Type: 
  Country: None (occurrence: None)
  Receive Date: 20110128
  Receipt Date: 20100407
  Transmission Date: 20110831
  Serious: Yes (Hospitalization)
  Sender: FDA-Public Use
  Company Number: US-ABBOTT-10P-163-0636203-00

PATIENT
  Sex: Male
  Weight: 63.56 kg

DRUGS (3)
  1. HUMIRA [Suspect]
     Indication: CROHN'S DISEASE
     Route: 058
     Dates: start: 20070404
  2. CIMZIA [Concomitant]
     Indication: PRODUCT USED FOR UNKNOWN INDICATION
  3. HUMIRA [Suspect]
     Dates: start: 20090917

REACTIONS (9)
  - NAUSEA [None]
  - URTICARIA [None]
  - INJECTION SITE PAIN [None]
  - RECTAL POLYP [None]
  - INFECTION [None]
  - ASTHMA [None]
  - SURGERY [None]
  - INJECTION SITE HAEMATOMA [None]
  - VOMITING [None]
